FAERS Safety Report 6435431-1 (Version None)
Quarter: 2009Q4

REPORT INFORMATION
  Report Type: 
  Country: None (occurrence: None)
  Receive Date: 20091106
  Receipt Date: 20091030
  Transmission Date: 20100525
  Serious: Yes (Other)
  Sender: FDA-Public Use
  Company Number: 420898

PATIENT
  Age: 64 Year
  Sex: Female

DRUGS (1)
  1. VANCOMYCIN [Suspect]
     Indication: ARTHRITIS BACTERIAL
     Dosage: INTRAVENOUS
     Route: 042

REACTIONS (6)
  - DISEASE RECURRENCE [None]
  - DRUG RESISTANCE [None]
  - INTERVERTEBRAL DISCITIS [None]
  - JOINT EFFUSION [None]
  - STAPHYLOCOCCAL INFECTION [None]
  - TREATMENT FAILURE [None]
